FAERS Safety Report 4616536-4 (Version None)
Quarter: 2005Q1

REPORT INFORMATION
  Report Type: 
  Country: None (occurrence: None)
  Receive Date: 20050318
  Receipt Date: 20050307
  Transmission Date: 20050727
  Serious: Yes (Death)
  Sender: FDA-Public Use
  Company Number: MK200503-0093-1

PATIENT
  Age: 60 Year
  Sex: Male

DRUGS (3)
  1. OPTIRAY 320 [Suspect]
     Indication: COMPUTERISED TOMOGRAM
     Dosage: 125 ML, ONE TIME, IV
     Route: 042
     Dates: start: 20050307, end: 20050307
  2. GLUCOPHAGE [Concomitant]
  3. HEART MEDICATIONS [Concomitant]

REACTIONS (9)
  - ANAPHYLACTIC REACTION [None]
  - BRONCHOSPASM [None]
  - CARDIAC ARREST [None]
  - COUGH [None]
  - DYSPNOEA [None]
  - HAEMATURIA [None]
  - HYPERHIDROSIS [None]
  - LARYNGEAL OEDEMA [None]
  - PALLOR [None]
